FAERS Safety Report 5394190-4 (Version None)
Quarter: 2007Q3

REPORT INFORMATION
  Report Type: 
  Country: None (occurrence: None)
  Receive Date: 20070723
  Receipt Date: 20070430
  Transmission Date: 20080115
  Serious: No
  Sender: FDA-Public Use
  Company Number: A0645968A

PATIENT
  Sex: Male

DRUGS (6)
  1. AVANDIA [Suspect]
     Dosage: 4MG PER DAY
     Route: 048
  2. ASPIRIN [Concomitant]
  3. CARDIZEM [Concomitant]
  4. DILANTIN KAPSEAL [Concomitant]
  5. LOTENSIN [Concomitant]
  6. CRESTOR [Concomitant]

REACTIONS (10)
  - ASTHENIA [None]
  - CHROMATURIA [None]
  - FATIGUE [None]
  - HYPERGLYCAEMIA [None]
  - INSOMNIA [None]
  - MUSCLE SPASMS [None]
  - OEDEMA PERIPHERAL [None]
  - POLLAKIURIA [None]
  - PRURITUS [None]
  - VISION BLURRED [None]
